FAERS Safety Report 24190282 (Version 3)
Quarter: 2024Q3

REPORT INFORMATION
  Report Type: Spontaneous
  Country: CA (occurrence: CA)
  Receive Date: 20240808
  Receipt Date: 20240920
  Transmission Date: 20241017
  Serious: Yes (Death, Life-Threatening, Other)
  Sender: PFIZER
  Company Number: CA-PFIZER INC-PV202300209493

PATIENT
  Age: 56 Year
  Sex: Female
  Weight: 54.5 kg

DRUGS (30)
  1. ZIRABEV [Suspect]
     Active Substance: BEVACIZUMAB-BVZR
     Indication: Glioblastoma
     Dosage: 550 MG (10 MG/KG), EVERY 2 WEEKS
     Route: 042
  2. ZIRABEV [Suspect]
     Active Substance: BEVACIZUMAB-BVZR
     Dosage: 550 MG, EVERY 2 WEEKS
     Route: 042
     Dates: start: 20240105
  3. ZIRABEV [Suspect]
     Active Substance: BEVACIZUMAB-BVZR
     Dosage: 550 MG
     Route: 042
     Dates: start: 20240105
  4. ZIRABEV [Suspect]
     Active Substance: BEVACIZUMAB-BVZR
     Dosage: 550 MG
     Route: 042
     Dates: start: 20240119
  5. ZIRABEV [Suspect]
     Active Substance: BEVACIZUMAB-BVZR
     Dosage: 550 MG
     Route: 042
     Dates: start: 20240119
  6. ZIRABEV [Suspect]
     Active Substance: BEVACIZUMAB-BVZR
     Dosage: 550 MG
     Route: 042
     Dates: start: 20240202, end: 20240202
  7. ZIRABEV [Suspect]
     Active Substance: BEVACIZUMAB-BVZR
     Dosage: 550 MG
     Route: 042
     Dates: start: 20240202
  8. ZIRABEV [Suspect]
     Active Substance: BEVACIZUMAB-BVZR
     Dosage: 550 MG
     Route: 042
     Dates: start: 20240216
  9. ZIRABEV [Suspect]
     Active Substance: BEVACIZUMAB-BVZR
     Dosage: 550 MG
     Route: 042
     Dates: start: 20240216
  10. ZIRABEV [Suspect]
     Active Substance: BEVACIZUMAB-BVZR
     Dosage: 550 MG
     Route: 042
     Dates: start: 20240301
  11. ZIRABEV [Suspect]
     Active Substance: BEVACIZUMAB-BVZR
     Dosage: 550 MG
     Route: 042
     Dates: start: 20240301
  12. ZIRABEV [Suspect]
     Active Substance: BEVACIZUMAB-BVZR
     Dosage: 550 MG
     Route: 042
     Dates: start: 20240315
  13. ZIRABEV [Suspect]
     Active Substance: BEVACIZUMAB-BVZR
     Dosage: 550 MG
     Route: 042
     Dates: start: 20240315
  14. ZIRABEV [Suspect]
     Active Substance: BEVACIZUMAB-BVZR
     Dosage: 550 MG
     Route: 042
     Dates: start: 20240328
  15. ZIRABEV [Suspect]
     Active Substance: BEVACIZUMAB-BVZR
     Dosage: 550 MG
     Route: 042
     Dates: start: 20240412
  16. ZIRABEV [Suspect]
     Active Substance: BEVACIZUMAB-BVZR
     Dosage: 550 MG
     Route: 042
     Dates: start: 20240426
  17. ZIRABEV [Suspect]
     Active Substance: BEVACIZUMAB-BVZR
     Dosage: 550 MG
     Route: 042
     Dates: start: 20240426
  18. ZIRABEV [Suspect]
     Active Substance: BEVACIZUMAB-BVZR
     Dosage: 550 MG
     Route: 042
     Dates: start: 20240510
  19. ZIRABEV [Suspect]
     Active Substance: BEVACIZUMAB-BVZR
     Dosage: 550 MG
     Route: 042
     Dates: start: 20240510
  20. ZIRABEV [Suspect]
     Active Substance: BEVACIZUMAB-BVZR
     Dosage: 550 MG, CYCLIC EVERY 2 WEEKS
     Route: 042
     Dates: start: 20240524
  21. ZIRABEV [Suspect]
     Active Substance: BEVACIZUMAB-BVZR
     Dosage: 550 MG, CYCLIC EVERY 2 WEEKS
     Route: 042
     Dates: start: 20240524
  22. ZIRABEV [Suspect]
     Active Substance: BEVACIZUMAB-BVZR
     Dosage: 550 MG, CYCLIC EVERY 2 WEEKS
     Route: 042
     Dates: start: 202406
  23. ZIRABEV [Suspect]
     Active Substance: BEVACIZUMAB-BVZR
     Dosage: 550 MG, CYCLIC EVERY 2 WEEKS
     Route: 042
     Dates: start: 20240607
  24. ZIRABEV [Suspect]
     Active Substance: BEVACIZUMAB-BVZR
     Dosage: 550 MG, CYCLIC EVERY 2 WEEKS
     Route: 042
     Dates: start: 20240607
  25. ZIRABEV [Suspect]
     Active Substance: BEVACIZUMAB-BVZR
     Dosage: 550 MG, CYCLIC EVERY 2 WEEKS
     Route: 042
     Dates: start: 20240621
  26. ZIRABEV [Suspect]
     Active Substance: BEVACIZUMAB-BVZR
     Dosage: 550 MG, CYCLIC EVERY 2 WEEKS
     Route: 042
     Dates: start: 20240621
  27. ZIRABEV [Suspect]
     Active Substance: BEVACIZUMAB-BVZR
     Dosage: 550 MG, EVERY 2 WEEKS
     Route: 042
     Dates: start: 20240705
  28. ZIRABEV [Suspect]
     Active Substance: BEVACIZUMAB-BVZR
     Dosage: 550 MG, EVERY 2 WEEKS
     Route: 042
     Dates: start: 20240705
  29. ZIRABEV [Suspect]
     Active Substance: BEVACIZUMAB-BVZR
     Dosage: 550 MG, EVERY 2 WEEKS
     Route: 042
     Dates: start: 20240806
  30. ZIRABEV [Suspect]
     Active Substance: BEVACIZUMAB-BVZR
     Dosage: 550 MG, EVERY 2 WEEKS
     Route: 042
     Dates: start: 20240806

REACTIONS (17)
  - Death [Fatal]
  - Fatigue [Not Recovered/Not Resolved]
  - Blood pressure systolic increased [Recovering/Resolving]
  - Dry mouth [Not Recovered/Not Resolved]
  - Foot fracture [Unknown]
  - Blood pressure diastolic increased [Not Recovered/Not Resolved]
  - Fatigue [Not Recovered/Not Resolved]
  - Hypertension [Unknown]
  - Pruritus [Recovering/Resolving]
  - Headache [Not Recovered/Not Resolved]
  - Cognitive disorder [Not Recovered/Not Resolved]
  - Visual field defect [Not Recovered/Not Resolved]
  - Pain [Not Recovered/Not Resolved]
  - Somnolence [Unknown]
  - Nausea [Not Recovered/Not Resolved]
  - Diarrhoea [Not Recovered/Not Resolved]
  - Off label use [Unknown]

NARRATIVE: CASE EVENT DATE: 20240101
